FAERS Safety Report 8831572 (Version 2)
Quarter: 2012Q4

REPORT INFORMATION
  Report Type: 
  Country: US (occurrence: US)
  Receive Date: 20121009
  Receipt Date: 20121018
  Transmission Date: 20130627
  Serious: No
  Sender: FDA-Public Use
  Company Number: US-VERTEX PHARMACEUTICAL INC.-2012-021814

PATIENT
  Age: 29 Year
  Sex: Female
  Weight: 84 kg

DRUGS (5)
  1. VX-950 [Suspect]
     Indication: HEPATITIS C
     Dosage: 750 mg, tid
     Route: 048
     Dates: start: 20120402
  2. PEGASYS [Concomitant]
     Indication: HEPATITIS C
     Dosage: 180 ?g, UNK
  3. RIBAPAK [Concomitant]
     Indication: HEPATITIS C
  4. AMBIEN [Concomitant]
     Dosage: 10 mg, UNK
  5. METHADONE [Concomitant]
     Dosage: 5 mg, UNK

REACTIONS (4)
  - Incorrect dose administered [Unknown]
  - Diplopia [Unknown]
  - Nausea [Unknown]
  - Vomiting [Unknown]
